FAERS Safety Report 6631107-6 (Version None)
Quarter: 2010Q1

REPORT INFORMATION
  Report Type: 
  Country: None (occurrence: None)
  Receive Date: 20100309
  Receipt Date: 20100301
  Transmission Date: 20100710
  Serious: Yes (Death, Hospitalization, Other)
  Sender: FDA-Public Use
  Company Number: 2010SP006919

PATIENT
  Age: 59 Year
  Sex: Female

DRUGS (12)
  1. PEG-INTERFERON [Suspect]
     Indication: HEPATITIS C
     Dosage: SC
     Route: 058
     Dates: start: 20090313
  2. RIBAVIRIN [Suspect]
     Indication: HEPATITIS C
     Dosage: PO
     Route: 048
     Dates: start: 20090313
  3. TELBIVUDINE [Concomitant]
  4. PRILOSEC [Concomitant]
  5. MECLIZINE [Concomitant]
  6. AMLODIPINE [Concomitant]
  7. MELOXICAM [Concomitant]
  8. LIPITOR [Concomitant]
  9. SYNTHROID [Concomitant]
  10. HYDROCHLOROTHIAZIDE [Concomitant]
  11. CELEXA [Concomitant]
  12. ARANESP [Concomitant]

REACTIONS (8)
  - ANAEMIA [None]
  - BLOOD POTASSIUM DECREASED [None]
  - CARDIO-RESPIRATORY ARREST [None]
  - DIZZINESS [None]
  - FORMICATION [None]
  - NAUSEA [None]
  - RESPIRATORY DISTRESS [None]
  - THROMBOTIC THROMBOCYTOPENIC PURPURA [None]
